FAERS Safety Report 7005420-7 (Version None)
Quarter: 2010Q3

REPORT INFORMATION
  Report Type: 
  Country: None (occurrence: None)
  Receive Date: 20100921
  Receipt Date: 20100909
  Transmission Date: 20110219
  Serious: Yes (Hospitalization, Other)
  Sender: FDA-Public Use
  Company Number: JP-ROCHE-714781

PATIENT
  Sex: Female
  Weight: 59 kg

DRUGS (15)
  1. ACTEMRA [Suspect]
     Indication: RHEUMATOID ARTHRITIS
     Route: 041
     Dates: start: 20090116, end: 20090116
  2. ACTEMRA [Suspect]
     Route: 041
     Dates: start: 20090220, end: 20090220
  3. ACTEMRA [Suspect]
     Route: 041
     Dates: start: 20090327, end: 20090327
  4. ACTEMRA [Suspect]
     Route: 041
     Dates: start: 20090422, end: 20090422
  5. ACTEMRA [Suspect]
     Route: 041
     Dates: start: 20090527, end: 20090527
  6. ACTEMRA [Suspect]
     Route: 041
     Dates: start: 20090624, end: 20090624
  7. ACTEMRA [Suspect]
     Route: 041
     Dates: start: 20090722, end: 20100514
  8. RHEUMATREX [Suspect]
     Indication: RHEUMATOID ARTHRITIS
     Route: 048
     Dates: end: 20100514
  9. PROGRAF [Concomitant]
     Route: 048
     Dates: end: 20100521
  10. FOLIAMIN [Concomitant]
     Route: 048
     Dates: end: 20100514
  11. MYSLEE [Concomitant]
     Route: 048
     Dates: end: 20100521
  12. LOXONIN [Concomitant]
     Route: 048
     Dates: end: 20100521
  13. ULGUT [Concomitant]
     Route: 048
     Dates: end: 20100601
  14. GLAKAY [Concomitant]
     Route: 048
     Dates: end: 20100601
  15. ALESION [Concomitant]
     Route: 048
     Dates: start: 20090527, end: 20100521

REACTIONS (4)
  - ALANINE AMINOTRANSFERASE INCREASED [None]
  - ASPARTATE AMINOTRANSFERASE INCREASED [None]
  - INTERSTITIAL LUNG DISEASE [None]
  - PRURITUS [None]
